FAERS Safety Report 24251668 (Version 1)
Quarter: 2024Q3

REPORT INFORMATION
  Report Type: Spontaneous
  Country: GB (occurrence: GB)
  Receive Date: 20240827
  Receipt Date: 20240827
  Transmission Date: 20241016
  Serious: Yes (Hospitalization, Other)
  Sender: NOVO NORDISK
  Company Number: GB-NOVOPROD-1270778

PATIENT
  Age: 37 Year
  Sex: Female

DRUGS (1)
  1. OZEMPIC [Suspect]
     Active Substance: SEMAGLUTIDE
     Indication: Weight control
     Dosage: UNK

REACTIONS (9)
  - Pain [Unknown]
  - Haematemesis [Unknown]
  - Blood glucose decreased [Unknown]
  - Vomiting [Unknown]
  - Counterfeit product administered [Unknown]
  - Malaise [Recovered/Resolved]
  - Hot flush [Recovered/Resolved]
  - Dehydration [Unknown]
  - Product use in unapproved indication [Unknown]
